FAERS Safety Report 6116646-9 (Version None)
Quarter: 2009Q1

REPORT INFORMATION
  Report Type: 
  Country: None (occurrence: None)
  Receive Date: 20090314
  Receipt Date: 20081222
  Transmission Date: 20090719
  Serious: No
  Sender: FDA-Public Use
  Company Number: US-ABBOTT-08P-163-0494577-00

PATIENT
  Sex: Female

DRUGS (3)
  1. HUMIRA [Suspect]
     Indication: CROHN'S DISEASE
     Dates: start: 20081127, end: 20081127
  2. HUMIRA [Suspect]
     Dates: start: 20081211, end: 20081211
  3. HUMIRA [Suspect]
     Route: 058
     Dates: start: 20081225

REACTIONS (2)
  - LYMPHADENOPATHY [None]
  - MALAISE [None]
